FAERS Safety Report 21691953 (Version 1)
Quarter: 2022Q4

REPORT INFORMATION
  Report Type: Spontaneous
  Country: US (occurrence: US)
  Receive Date: 20221207
  Receipt Date: 20221207
  Transmission Date: 20230113
  Serious: No
  Sender: FDA-Public Use
  Company Number: US-GLENMARK PHARMACEUTICALS-2022GMK072822

PATIENT

DRUGS (1)
  1. TOPIRAMATE [Suspect]
     Active Substance: TOPIRAMATE
     Indication: Product used for unknown indication
     Dosage: 0.5 DOSAGE FORM, QD (HALF TABLET DAILY FOR 7 DAYS THEN ONE WHOLE TABLET FOR TWO TIMES A DAY FOR 2 WE
     Route: 065

REACTIONS (1)
  - Product prescribing issue [Unknown]
